FAERS Safety Report 14950376 (Version 1)
Quarter: 2018Q2

REPORT INFORMATION
  Report Type: Spontaneous
  Country: US (occurrence: US)
  Receive Date: 20180530
  Receipt Date: 20180530
  Transmission Date: 20180711
  Serious: No
  Sender: FDA-Public Use
  Company Number: US-BEH-2018090986

PATIENT
  Age: 64 Year
  Sex: Male
  Weight: 79.37 kg

DRUGS (20)
  1. ACETAMINOPHEN. [Concomitant]
     Active Substance: ACETAMINOPHEN
  2. EPINEPHRINE. [Concomitant]
     Active Substance: EPINEPHRINE
  3. XARELTO [Concomitant]
     Active Substance: RIVAROXABAN
  4. LIDOCAINE. [Concomitant]
     Active Substance: LIDOCAINE
  5. ZOCOR [Concomitant]
     Active Substance: SIMVASTATIN
  6. VITAMIN C [Concomitant]
     Active Substance: ASCORBIC ACID
  7. MOXIFLOXACIN. [Concomitant]
     Active Substance: MOXIFLOXACIN
  8. DIOVAN [Concomitant]
     Active Substance: VALSARTAN
  9. ZYRTEC [Concomitant]
     Active Substance: CETIRIZINE HYDROCHLORIDE
  10. VITAMIN D3 [Concomitant]
     Active Substance: CHOLECALCIFEROL
  11. BENZONATATE. [Concomitant]
     Active Substance: BENZONATATE
  12. HIZENTRA [Suspect]
     Active Substance: HUMAN IMMUNOGLOBULIN G
     Indication: IMMUNODEFICIENCY COMMON VARIABLE
     Dosage: 10 G, QW
     Route: 058
     Dates: start: 20180312
  13. DIPHENHYDRAMINE. [Concomitant]
     Active Substance: DIPHENHYDRAMINE
  14. FISH OIL [Concomitant]
     Active Substance: FISH OIL
  15. AMBIEN [Concomitant]
     Active Substance: ZOLPIDEM TARTRATE
  16. HIZENTRA [Suspect]
     Active Substance: HUMAN IMMUNOGLOBULIN G
     Dosage: 10 G, TOT
     Route: 058
     Dates: start: 20180521, end: 20180521
  17. AZITHROMYCIN ANHYDROUS. [Concomitant]
     Active Substance: AZITHROMYCIN ANHYDROUS
  18. CABERGOLINE. [Concomitant]
     Active Substance: CABERGOLINE
  19. PROVENTIL [Concomitant]
     Active Substance: ALBUTEROL
  20. DEPO-TESTOSTERONE [Concomitant]
     Active Substance: TESTOSTERONE CYPIONATE

REACTIONS (3)
  - Diarrhoea [Unknown]
  - Vertigo [Unknown]
  - Nausea [Unknown]

NARRATIVE: CASE EVENT DATE: 20180522
